FAERS Safety Report 4357158-2 (Version None)
Quarter: 2004Q2

REPORT INFORMATION
  Report Type: 
  Country: None (occurrence: None)
  Receive Date: 20040507
  Receipt Date: 20040422
  Transmission Date: 20050107
  Serious: Yes (Hospitalization)
  Sender: FDA-Public Use
  Company Number: 2004-04-1514

PATIENT
  Age: 55 Year
  Sex: Female

DRUGS (2)
  1. PEG-INTRON [Suspect]
     Indication: HEPATITIS C
     Dosage: 150 MCG
     Dates: start: 20031001, end: 20040419
  2. REBETOL [Suspect]
     Indication: HEPATITIS C
     Dosage: ^200 MG^
     Dates: start: 20031001, end: 20040419

REACTIONS (4)
  - MOBILITY DECREASED [None]
  - MUSCULOSKELETAL STIFFNESS [None]
  - PAIN [None]
  - WEIGHT DECREASED [None]
